FAERS Safety Report 9787545 (Version 1)
Quarter: 2013Q4

REPORT INFORMATION
  Report Type: Spontaneous
  Country: US (occurrence: None)
  Receive Date: 20131224
  Receipt Date: 20131224
  Transmission Date: 20140711
  Serious: Yes (Other)
  Sender: FDA-Public Use
  Company Number: CO-OR-US-2013-235

PATIENT
  Sex: 0

DRUGS (2)
  1. PREDNISOLONE (PREDNISOLONE) [Suspect]
     Indication: PROPHYLAXIS
     Route: 048
  2. HYDROCORTISONE PHOSPHATE [Suspect]
     Indication: PROPHYLAXIS
     Dosage: 100MG, EVERY 8 HRS FOR 24 HRS,
     Route: 042

REACTIONS (1)
  - Adrenal insufficiency [None]
